FAERS Safety Report 8823572 (Version 2)
Quarter: 2012Q4

REPORT INFORMATION
  Report Type: 
  Country: US (occurrence: US)
  Receive Date: 20121003
  Receipt Date: 20121113
  Transmission Date: 20130627
  Serious: Yes (Hospitalization, Other)
  Sender: FDA-Public Use
  Company Number: US-009507513-1206USA02277

PATIENT

DRUGS (13)
  1. FOSAMAX [Suspect]
     Indication: OSTEOPENIA
     Dosage: 10 mg, UNK
     Route: 048
     Dates: start: 200202, end: 200801
  2. FOSAMAX [Suspect]
     Dosage: 70 mg, qw
     Route: 048
  3. FOSAMAX [Suspect]
     Indication: OSTEOPENIA
     Dosage: 70 mg, UNK
     Route: 048
     Dates: start: 200802, end: 201006
  4. CALCIUM (UNSPECIFIED) (+) MAGNESIUM (UNSPECIFIED) [Concomitant]
     Dosage: 1200mg/500mg
     Dates: start: 1970
  5. VITAMINS (UNSPECIFIED) [Concomitant]
     Dosage: UNK, qd
     Dates: start: 1970
  6. VITAMIN D (UNSPECIFIED) [Concomitant]
     Indication: OSTEOPENIA
     Dosage: 1000 IU, qd
     Dates: start: 1970
  7. UBIDECARENONE [Concomitant]
  8. HORMONES (UNSPECIFIED) [Concomitant]
     Dosage: UNK
     Dates: start: 199708, end: 200206
  9. CALCIUM (UNSPECIFIED) [Concomitant]
     Indication: OSTEOPENIA
  10. VOLTAREN [Concomitant]
     Dosage: 75 mg, bid prn
     Route: 048
  11. DYAZIDE [Concomitant]
  12. PHENTERMINE [Concomitant]
     Dosage: 30 mg, qam
     Route: 048
  13. SYNTHROID [Concomitant]
     Indication: HYPOTHYROIDISM

REACTIONS (38)
  - Femur fracture [Unknown]
  - Intramedullary rod insertion [Unknown]
  - Femur fracture [Unknown]
  - Intramedullary rod insertion [Unknown]
  - Haemorrhagic anaemia [Unknown]
  - Foot operation [Unknown]
  - Low turnover osteopathy [Unknown]
  - Adverse event [Unknown]
  - Foot fracture [Recovered/Resolved]
  - Foot fracture [Unknown]
  - Foot fracture [Unknown]
  - Foot fracture [Unknown]
  - Foot fracture [Unknown]
  - Foot fracture [Unknown]
  - Herpes zoster [Unknown]
  - Arthropod bite [Unknown]
  - Weight decreased [Unknown]
  - Cellulitis [Unknown]
  - Foot fracture [Unknown]
  - Dehydration [Unknown]
  - Gastroenteritis [Unknown]
  - Hyperglycaemia [Unknown]
  - Hypokalaemia [Unknown]
  - Hypomagnesaemia [Unknown]
  - Bursitis [Unknown]
  - Nephrolithiasis [Unknown]
  - Cardiac murmur [Unknown]
  - Anxiety [Unknown]
  - Fracture nonunion [Recovering/Resolving]
  - Foot fracture [Unknown]
  - Foot fracture [Recovered/Resolved]
  - Foot deformity [Unknown]
  - Muscle spasms [Unknown]
  - Rheumatoid arthritis [Unknown]
  - Dehydration [Unknown]
  - Hypotension [Unknown]
  - Oesophageal dilatation [Unknown]
  - Atelectasis [Unknown]
